FAERS Safety Report 16916064 (Version 1)
Quarter: 2019Q4

REPORT INFORMATION
  Report Type: Spontaneous
  Country: AU (occurrence: AU)
  Receive Date: 20191014
  Receipt Date: 20191014
  Transmission Date: 20200122
  Serious: Yes (Other)
  Sender: FDA-Public Use
  Company Number: AU-MYLANLABS-2019M1095299

PATIENT
  Age: 71 Year
  Sex: Female

DRUGS (1)
  1. ISOPTIN SR [Suspect]
     Active Substance: VERAPAMIL HYDROCHLORIDE
     Indication: PRODUCT USED FOR UNKNOWN INDICATION
     Dosage: UNK
     Dates: start: 2019

REACTIONS (11)
  - Sleep disorder [Unknown]
  - Fatigue [Unknown]
  - Constipation [Unknown]
  - Palpitations [Unknown]
  - Dysstasia [Unknown]
  - Therapeutic response unexpected [Unknown]
  - Chest discomfort [Unknown]
  - Feeling abnormal [Unknown]
  - Impaired work ability [Unknown]
  - Cerebral disorder [Unknown]
  - Memory impairment [Unknown]

NARRATIVE: CASE EVENT DATE: 2019
